FAERS Safety Report 15776875 (Version 1)
Quarter: 2018Q4

REPORT INFORMATION
  Report Type: Spontaneous
  Country: US (occurrence: US)
  Receive Date: 20181231
  Receipt Date: 20181231
  Transmission Date: 20190205
  Serious: No
  Sender: FDA-Public Use
  Company Number: US-PFIZER INC-2018530724

PATIENT
  Age: 55 Year
  Sex: Male
  Weight: 99.79 kg

DRUGS (5)
  1. HYDROCODONE [Concomitant]
     Active Substance: HYDROCODONE
     Dosage: 7.5 MG
  2. NEURONTIN [Suspect]
     Active Substance: GABAPENTIN
     Indication: PAIN
  3. NEURONTIN [Suspect]
     Active Substance: GABAPENTIN
     Indication: INTERVERTEBRAL DISC DEGENERATION
  4. NEURONTIN [Suspect]
     Active Substance: GABAPENTIN
     Indication: SPINAL COLUMN STENOSIS
     Dosage: UNK
  5. PERCOCET [OXYCODONE HYDROCHLORIDE;OXYCODONE TEREPHTHALATE;PARACETAMOL] [Concomitant]
     Active Substance: ACETAMINOPHEN\OXYCODONE HYDROCHLORIDE\OXYCODONE TEREPHTHALATE
     Dosage: 10 MG, 4X/DAY

REACTIONS (4)
  - Feeling abnormal [Unknown]
  - Limb discomfort [Unknown]
  - Drug ineffective for unapproved indication [Unknown]
  - Pain in extremity [Unknown]
